FAERS Safety Report 8212246-5 (Version None)
Quarter: 2012Q1

REPORT INFORMATION
  Report Type: 
  Country: None (occurrence: None)
  Receive Date: 20120315
  Receipt Date: 20120308
  Transmission Date: 20120608
  Serious: Yes (Other)
  Sender: FDA-Public Use
  Company Number: US-JNJFOC-20120113699

PATIENT
  Age: 74 Year
  Sex: Male
  Weight: 108.86 kg

DRUGS (6)
  1. IMODIUM MULTI-SYMPTOM RELIEF [Suspect]
     Route: 048
  2. EYE MEDICATIONS [Concomitant]
     Indication: DRY EYE
     Route: 065
  3. VICODIN [Concomitant]
     Indication: PROCEDURAL PAIN
     Route: 065
     Dates: start: 20120126
  4. COLACE [Concomitant]
     Indication: ABNORMAL FAECES
     Route: 065
     Dates: start: 20120127, end: 20120129
  5. IMODIUM MULTI-SYMPTOM RELIEF [Suspect]
     Indication: DIARRHOEA
     Route: 048
     Dates: start: 20120129, end: 20120129
  6. EYE MEDICATIONS [Concomitant]
     Indication: MACULAR DEGENERATION
     Route: 047
     Dates: start: 20100101

REACTIONS (1)
  - URINARY RETENTION [None]
